FAERS Safety Report 5204161-6 (Version None)
Quarter: 2007Q1

REPORT INFORMATION
  Report Type: 
  Country: None (occurrence: None)
  Receive Date: 20070110
  Receipt Date: 20051220
  Transmission Date: 20070707
  Serious: Yes (Other)
  Sender: FDA-Public Use
  Company Number: US-BRISTOL-MYERS SQUIBB COMPANY-13224209

PATIENT
  Age: 58 Year
  Sex: Female
  Weight: 63 kg

DRUGS (4)
  1. ABILIFY [Suspect]
     Indication: DEPRESSION
     Route: 048
  2. PROZAC [Suspect]
     Indication: DEPRESSION
     Route: 048
  3. PROTONIX [Concomitant]
  4. TYLENOL [Concomitant]

REACTIONS (4)
  - DEPRESSION [None]
  - GAIT DISTURBANCE [None]
  - PARKINSONISM [None]
  - TREMOR [None]
